FAERS Safety Report 6245010-7 (Version None)
Quarter: 2009Q2

REPORT INFORMATION
  Report Type: 
  Country: None (occurrence: None)
  Receive Date: 20090625
  Receipt Date: 20090610
  Transmission Date: 20091009
  Serious: Yes (Hospitalization)
  Sender: FDA-Public Use
  Company Number: HR-JNJFOC-20090606786

PATIENT
  Age: 38 Year
  Sex: Female

DRUGS (2)
  1. RISPERIDONE [Suspect]
     Indication: SCHIZOAFFECTIVE DISORDER
     Route: 030
  2. RISPERIDONE [Suspect]
     Route: 065

REACTIONS (3)
  - AGGRESSION [None]
  - PSYCHOTIC DISORDER [None]
  - WHITE BLOOD CELL COUNT DECREASED [None]
